APPROVED DRUG PRODUCT: CLARITHROMYCIN
Active Ingredient: CLARITHROMYCIN
Strength: 250MG
Dosage Form/Route: TABLET;ORAL
Application: A065144 | Product #001 | TE Code: AB
Applicant: SANDOZ INC
Approved: Oct 18, 2005 | RLD: No | RS: No | Type: RX